FAERS Safety Report 7947926-X (Version None)
Quarter: 2011Q4

REPORT INFORMATION
  Report Type: 
  Country: None (occurrence: None)
  Receive Date: 20111123
  Receipt Date: 20111031
  Transmission Date: 20120403
  Serious: Yes (Life-Threatening, Hospitalization)
  Sender: FDA-Public Use
  Company Number: 54973

PATIENT
  Age: 7 Year
  Sex: Female

DRUGS (1)
  1. QUIT NITS [Suspect]
     Indication: LICE INFESTATION
     Dosage: 2 SHAMPOO TREATMENTS

REACTIONS (1)
  - CONVULSION [None]
